FAERS Safety Report 6442914-7 (Version None)
Quarter: 2009Q4

REPORT INFORMATION
  Report Type: 
  Country: None (occurrence: None)
  Receive Date: 20091112
  Receipt Date: 20091108
  Transmission Date: 20100525
  Serious: Yes (Death)
  Sender: FDA-Public Use
  Company Number: A-US2009-28684

PATIENT
  Sex: Male

DRUGS (1)
  1. VENTAVIS [Suspect]
     Indication: DRUG USE FOR UNKNOWN INDICATION
     Dosage: RESPIRATORY
     Route: 055
     Dates: end: 20081125

REACTIONS (1)
  - NO THERAPEUTIC RESPONSE [None]
